FAERS Safety Report 5211710-0 (Version None)
Quarter: 2007Q1

REPORT INFORMATION
  Report Type: 
  Country: None (occurrence: None)
  Receive Date: 20070116
  Receipt Date: 20061227
  Transmission Date: 20070707
  Serious: Yes (Other)
  Sender: FDA-Public Use
  Company Number: DSA_28997_2006

PATIENT
  Sex: 0

DRUGS (2)
  1. ATIVAN [Suspect]
     Dosage: DF PO
     Route: 048
  2. AMBIEN [Suspect]
     Dosage: DF PO
     Route: 048

REACTIONS (4)
  - ABNORMAL SLEEP-RELATED EVENT [None]
  - DRUG INTERACTION [None]
  - EATING DISORDER [None]
  - SLEEP WALKING [None]
